FAERS Safety Report 9795518 (Version 2)
Quarter: 2014Q1

REPORT INFORMATION
  Report Type: Report from Study
  Country: JP (occurrence: JP)
  Receive Date: 20140103
  Receipt Date: 20140103
  Transmission Date: 20141002
  Serious: Yes (Death, Hospitalization)
  Sender: FDA-Public Use
  Company Number: JP-INCYTE CORPORATION-2012IN000861

PATIENT
  Age: 51 Year
  Sex: Female
  Weight: 67 kg

DRUGS (13)
  1. CINC424B2301 [Suspect]
     Indication: POLYCYTHAEMIA VERA
     Dosage: UNK
     Route: 048
     Dates: start: 20121107, end: 20131204
  2. ACTIVE CONTROL A.C COMP-ACC+ [Suspect]
     Indication: POLYCYTHAEMIA VERA
     Dosage: UNK
     Route: 048
     Dates: start: 201003
  3. HYDREA [Suspect]
     Indication: POLYCYTHAEMIA VERA
     Dosage: 500 MG, UNK
     Route: 048
     Dates: start: 201003
  4. BUFFERIN [Concomitant]
     Dosage: UNK
     Dates: start: 20120314
  5. NU-LOTAN [Concomitant]
     Dosage: UNK
     Dates: start: 20131106
  6. ARASENA A [Concomitant]
     Dosage: UNK
     Dates: start: 20131114
  7. MUCOSTA [Concomitant]
     Dosage: UNK
     Dates: start: 20111028
  8. ZYLORIC [Concomitant]
     Dosage: UNK
     Dates: start: 20111028
  9. PARIET [Concomitant]
     Dosage: UNK
     Dates: start: 20120222
  10. CALBLOCK [Concomitant]
     Dosage: UNK
     Dates: start: 201003
  11. LASIX [Concomitant]
     Dosage: UNK
     Dates: start: 20131011
  12. HYALEIN [Concomitant]
     Dosage: UNK
     Dates: start: 20131008
  13. LIVOSTIN [Concomitant]
     Dosage: UNK
     Dates: start: 20131008

REACTIONS (5)
  - Pulmonary hypertension [Fatal]
  - Multi-organ failure [Fatal]
  - Shock [Fatal]
  - Nephrotic syndrome [Recovering/Resolving]
  - Gastroenteritis [Recovered/Resolved]
